FAERS Safety Report 8715929 (Version 2)
Quarter: 2012Q4

REPORT INFORMATION
  Report Type: 
  Country: US (occurrence: US)
  Receive Date: 20120809
  Receipt Date: 20120910
  Transmission Date: 20130627
  Serious: Yes (Hospitalization)
  Sender: FDA-Public Use
  Company Number: US-ACTELION-A-NJ2012-69541

PATIENT
  Age: 39 Year
  Sex: Female

DRUGS (2)
  1. VELETRI [Suspect]
     Indication: PULMONARY ARTERIAL HYPERTENSION
     Dosage: 16 ng/kg, per min
     Route: 041
     Dates: start: 20100722
  2. SILDENAFIL [Concomitant]

REACTIONS (3)
  - Skin infection [Unknown]
  - Device related infection [Unknown]
  - Catheter site discharge [Unknown]
